FAERS Safety Report 9556767 (Version 1)
Quarter: 2013Q3

REPORT INFORMATION
  Report Type: Spontaneous
  Country: US (occurrence: None)
  Receive Date: 20130924
  Receipt Date: 20130924
  Transmission Date: 20140515
  Serious: Yes (Death, Life-Threatening)
  Sender: FDA-Public Use
  Company Number: 1713747-2013-99952

PATIENT
  Age: 73 Year
  Sex: Male
  Weight: 86.5 kg

DRUGS (5)
  1. SODIUM CHLORIDE [Suspect]
  2. FRESENIUS COMBISET [Concomitant]
  3. FRESENIUS DIALYZER [Concomitant]
  4. FRESENIUS COLLECTIVE CONCENTRATES [Concomitant]
  5. FRESENIUS 2008K HEMODIALYSIS MACHINE [Concomitant]

REACTIONS (6)
  - Hypotension [None]
  - Dyspnoea [None]
  - Unresponsive to stimuli [None]
  - Respiratory arrest [None]
  - Pulse absent [None]
  - Procedural complication [None]
